FAERS Safety Report 24046973 (Version 1)
Quarter: 2024Q3

REPORT INFORMATION
  Report Type: Spontaneous
  Country: US (occurrence: US)
  Receive Date: 20240703
  Receipt Date: 20240703
  Transmission Date: 20241017
  Serious: Yes (Other)
  Sender: BAYER
  Company Number: US-BAYER-2024A092607

PATIENT
  Sex: Male

DRUGS (2)
  1. XOFIGO [Suspect]
     Active Substance: RADIUM RA-223 DICHLORIDE
     Dosage: 152 MCCI
     Dates: start: 20240306, end: 20240306
  2. XOFIGO [Suspect]
     Active Substance: RADIUM RA-223 DICHLORIDE
     Dosage: 143 MCCI
     Dates: start: 20240403, end: 20240403

REACTIONS (3)
  - Prostatic specific antigen increased [None]
  - Malignant neoplasm progression [None]
  - Drug ineffective [None]

NARRATIVE: CASE EVENT DATE: 20240601
